FAERS Safety Report 4902444-8 (Version None)
Quarter: 2006Q1

REPORT INFORMATION
  Report Type: 
  Country: None (occurrence: None)
  Receive Date: 20060202
  Receipt Date: 20060125
  Transmission Date: 20060701
  Serious: Yes (Other)
  Sender: FDA-Public Use
  Company Number: 2006-CZ-00474

PATIENT
  Age: 56 Year
  Sex: Male

DRUGS (2)
  1. PERGOLIDE MESYLATE [Suspect]
     Dosage: 1 MG THRICE DAILY,
  2. LEVODOPA W/BENSERAZIDE/ [Suspect]
     Dosage: 100/25/ MG/DAY,

REACTIONS (2)
  - PLEUROTHOTONUS [None]
  - THERAPY NON-RESPONDER [None]
